FAERS Safety Report 5167250-0 (Version None)
Quarter: 2006Q4

REPORT INFORMATION
  Report Type: 
  Country: None (occurrence: None)
  Receive Date: 20061207
  Receipt Date: 20061204
  Transmission Date: 20070319
  Serious: Yes (Death)
  Sender: FDA-Public Use
  Company Number: US-ROXANE LABORATORIES, INC-2006-DE-06459GD

PATIENT
  Age: 39 Year
  Sex: Male

DRUGS (3)
  1. PREDNISONE TAB [Suspect]
     Indication: SARCOIDOSIS
  2. HYDROXYCHLOROQUINE SULFATE [Suspect]
     Indication: SARCOIDOSIS
  3. EPOPROSTENOL SODIUM [Suspect]
     Indication: PULMONARY HYPERTENSION
     Dosage: 10 NG/KG/MIN (MAXIMUM DOSE)
     Route: 042

REACTIONS (2)
  - CARDIAC ARREST [None]
  - PULMONARY HYPERTENSION [None]
